FAERS Safety Report 5837608-2 (Version None)
Quarter: 2008Q3

REPORT INFORMATION
  Report Type: 
  Country: None (occurrence: None)
  Receive Date: 20080807
  Receipt Date: 20080730
  Transmission Date: 20090109
  Serious: Yes (Other)
  Sender: FDA-Public Use
  Company Number: PHHY2008ES15896

PATIENT
  Age: 48 Year
  Sex: Female

DRUGS (3)
  1. TRILEPTAL [Suspect]
     Indication: EPILEPSY
     Dosage: 300 MG, BID
     Route: 048
     Dates: start: 20040101, end: 20071201
  2. TRILEPTAL [Interacting]
     Dosage: 700 MG
  3. IBUPROFEN TABLETS [Interacting]
     Indication: HEADACHE
     Dosage: 1200 MG, BID

REACTIONS (4)
  - CONVULSION [None]
  - DRUG INTERACTION [None]
  - HEADACHE [None]
  - HYPONATRAEMIA [None]
